FAERS Safety Report 16503948 (Version 1)
Quarter: 2019Q3

REPORT INFORMATION
  Report Type: Spontaneous
  Country: IT (occurrence: IT)
  Receive Date: 20190701
  Receipt Date: 20190701
  Transmission Date: 20191004
  Serious: Yes (Other)
  Sender: FDA-Public Use
  Company Number: IT-ELI_LILLY_AND_COMPANY-IT201906013781

PATIENT
  Age: 71 Year
  Sex: Male
  Weight: 60 kg

DRUGS (9)
  1. OXALIPLATINO ACCORD HEALTHCARE [Suspect]
     Active Substance: OXALIPLATIN
     Dosage: 103.9 MG, CYCLICAL
     Route: 042
     Dates: start: 20190524
  2. DEXAMETHASONE. [Concomitant]
     Active Substance: DEXAMETHASONE
     Indication: PRODUCT USED FOR UNKNOWN INDICATION
     Dosage: UNK
  3. ERBITUX [Suspect]
     Active Substance: CETUXIMAB
     Indication: COLON CANCER
     Dosage: 611.3 MG, CYCLICAL
     Route: 042
     Dates: start: 20181016
  4. FLUOROURACILE TEVA [Suspect]
     Active Substance: FLUOROURACIL
     Indication: COLON CANCER
     Dosage: 489 MG, CYCLICAL
     Route: 040
     Dates: start: 20181016
  5. FLUOROURACILE TEVA [Suspect]
     Active Substance: FLUOROURACIL
     Dosage: 2934 MG, CYCLICAL
     Route: 042
     Dates: start: 20190524
  6. ERBITUX [Suspect]
     Active Substance: CETUXIMAB
     Dosage: 611.3 MG, CYCLICAL
     Route: 042
     Dates: start: 20190524
  7. OXALIPLATINO ACCORD HEALTHCARE [Suspect]
     Active Substance: OXALIPLATIN
     Indication: COLON CANCER
     Dosage: 103.9 MG, CYCLICAL
     Route: 042
     Dates: start: 20181016
  8. FLUOROURACILE TEVA [Suspect]
     Active Substance: FLUOROURACIL
     Dosage: 2934 MG, CYCLICAL
     Route: 042
     Dates: start: 20181016
  9. RANITIDINE HYDROCHLORIDE. [Concomitant]
     Active Substance: RANITIDINE HYDROCHLORIDE
     Indication: PRODUCT USED FOR UNKNOWN INDICATION
     Dosage: UNK

REACTIONS (3)
  - Thrombocytopenia [Recovering/Resolving]
  - Leukopenia [Recovering/Resolving]
  - Neutropenia [Recovering/Resolving]

NARRATIVE: CASE EVENT DATE: 20190606
